FAERS Safety Report 10204955 (Version 1)
Quarter: 2014Q2

REPORT INFORMATION
  Report Type: Spontaneous
  Country: JP (occurrence: JP)
  Receive Date: 20140529
  Receipt Date: 20140529
  Transmission Date: 20141212
  Serious: Yes (Death)
  Sender: FDA-Public Use
  Company Number: JP-CELGENEUS-087-50794-14055457

PATIENT
  Age: 78 Year
  Sex: Male

DRUGS (2)
  1. VIDAZA [Suspect]
     Indication: PRODUCT USED FOR UNKNOWN INDICATION
     Dosage: 100 MILLIGRAM
     Route: 041
     Dates: start: 20140409, end: 20140413
  2. VIDAZA [Suspect]
     Dosage: 100 MILLIGRAM
     Route: 041
     Dates: start: 20140508, end: 20140512

REACTIONS (1)
  - Renal failure [Fatal]
